FAERS Safety Report 15562951 (Version 4)
Quarter: 2024Q2

REPORT INFORMATION
  Report Type: Report from Study
  Country: US (occurrence: US)
  Receive Date: 20181029
  Receipt Date: 20240628
  Transmission Date: 20240716
  Serious: Yes (Hospitalization)
  Sender: FDA-Public Use
  Company Number: US-JNJFOC-20181036215

PATIENT
  Age: 77 Year
  Sex: Male

DRUGS (1)
  1. REMICADE [Suspect]
     Active Substance: INFLIXIMAB
     Indication: Psoriasis
     Route: 041
     Dates: start: 20170701, end: 20171101

REACTIONS (2)
  - Bladder transitional cell carcinoma [Recovered/Resolved with Sequelae]
  - Haematuria [Unknown]

NARRATIVE: CASE EVENT DATE: 20180420
